FAERS Safety Report 10500954 (Version 1)
Quarter: 2014Q4

REPORT INFORMATION
  Report Type: Spontaneous
  Country: CA (occurrence: CA)
  Receive Date: 20141007
  Receipt Date: 20141007
  Transmission Date: 20150528
  Serious: Yes (Other)
  Sender: FDA-Public Use
  Company Number: CA-ROCHE-1468945

PATIENT
  Age: 46 Year
  Sex: Female

DRUGS (6)
  1. XOLAIR [Suspect]
     Active Substance: OMALIZUMAB
     Route: 065
     Dates: start: 20110427
  2. ALVESCO [Concomitant]
     Active Substance: CICLESONIDE
  3. XOLAIR [Suspect]
     Active Substance: OMALIZUMAB
     Dosage: ONLY 2 VIALS
     Route: 058
     Dates: start: 20140928
  4. XOLAIR [Suspect]
     Active Substance: OMALIZUMAB
     Indication: ASTHMA
     Route: 058
     Dates: start: 20100803
  5. SYMBICORT [Concomitant]
     Active Substance: BUDESONIDE\FORMOTEROL FUMARATE DIHYDRATE
  6. XOLAIR [Suspect]
     Active Substance: OMALIZUMAB
     Route: 058

REACTIONS (13)
  - Eye pruritus [Unknown]
  - Headache [Unknown]
  - Fatigue [Unknown]
  - Bronchitis [Recovered/Resolved]
  - Hypersensitivity [Unknown]
  - Aphonia [Unknown]
  - Blood pressure decreased [Unknown]
  - Sinusitis [Recovered/Resolved]
  - Dysphonia [Unknown]
  - Incorrect dose administered [Unknown]
  - Dizziness [Unknown]
  - Cough [Unknown]
  - Dyspnoea [Unknown]

NARRATIVE: CASE EVENT DATE: 20110427
